FAERS Safety Report 6476745-9 (Version None)
Quarter: 2009Q4

REPORT INFORMATION
  Report Type: 
  Country: None (occurrence: None)
  Receive Date: 20091207
  Receipt Date: 20091126
  Transmission Date: 20100525
  Serious: Yes (Other)
  Sender: FDA-Public Use
  Company Number: PHHY2009BR52233

PATIENT
  Age: 38 Year
  Sex: Female

DRUGS (4)
  1. DIOVAN [Suspect]
     Indication: HYPERTENSION
     Dosage: 1 TABLET (80 MG) IN THE MORNING
     Route: 048
  2. DIOVAN [Suspect]
     Indication: ARRHYTHMIA
  3. SELOZOK [Concomitant]
     Dosage: 1 TABLET (25 MG) AT NIGHT
  4. DIAZEPAM [Concomitant]
     Dosage: 1 TABLET (10 MG) DAILY

REACTIONS (8)
  - BREAST MASS [None]
  - BURNING SENSATION [None]
  - DYSPNOEA [None]
  - FATIGUE [None]
  - HEART RATE INCREASED [None]
  - HYPERSENSITIVITY [None]
  - HYPOTENSION [None]
  - PAIN [None]
